FAERS Safety Report 8264364-3 (Version None)
Quarter: 2012Q2

REPORT INFORMATION
  Report Type: 
  Country: None (occurrence: None)
  Receive Date: 20120406
  Receipt Date: 20120329
  Transmission Date: 20120825
  Serious: Yes (Other)
  Sender: FDA-Public Use
  Company Number: CA-JNJFOC-20120314643

PATIENT
  Sex: Female
  Weight: 90 kg

DRUGS (2)
  1. METHOTREXATE [Concomitant]
     Dosage: 8  TABS ONCE WEEKLY
     Route: 065
  2. REMICADE [Suspect]
     Indication: PSORIASIS
     Route: 042
     Dates: start: 20080301

REACTIONS (2)
  - DYSPNOEA [None]
  - OESOPHAGEAL SPASM [None]
